FAERS Safety Report 15005413 (Version 1)
Quarter: 2018Q2

REPORT INFORMATION
  Report Type: Spontaneous
  Country: CO (occurrence: CO)
  Receive Date: 20180613
  Receipt Date: 20180613
  Transmission Date: 20180711
  Serious: Yes (Other)
  Sender: FDA-Public Use
  Company Number: CO-AMGEN-COLSP2018077609

PATIENT
  Age: 73 Year
  Sex: Female
  Weight: 53.5 kg

DRUGS (6)
  1. PREDNISOLONE. [Concomitant]
     Active Substance: PREDNISOLONE
     Dosage: 5 MG, QD
     Route: 048
     Dates: start: 201611
  2. METHOTREXATE. [Concomitant]
     Active Substance: METHOTREXATE
  3. XELJANZ [Suspect]
     Active Substance: TOFACITINIB CITRATE
     Indication: RHEUMATOID ARTHRITIS
     Dosage: 5 MG, UNK
     Route: 048
  4. LEFLUNOMIDE. [Concomitant]
     Active Substance: LEFLUNOMIDE
  5. PROLIA [Suspect]
     Active Substance: DENOSUMAB
     Indication: OSTEOPOROSIS POSTMENOPAUSAL
     Dosage: UNK
     Route: 065
  6. RIVAROXABAN [Concomitant]
     Active Substance: RIVAROXABAN

REACTIONS (17)
  - Burning sensation [Recovered/Resolved]
  - Osteopenia [Unknown]
  - Lordosis [Unknown]
  - Acoustic neuroma [Unknown]
  - Intervertebral disc degeneration [Unknown]
  - Meningioma [Unknown]
  - Rheumatoid arthritis [Unknown]
  - Limb discomfort [Recovered/Resolved]
  - Spondylolisthesis [Unknown]
  - Drug intolerance [Unknown]
  - Chest pain [Recovered/Resolved]
  - Syndesmophyte [Unknown]
  - Back pain [Recovered/Resolved]
  - Musculoskeletal pain [Recovered/Resolved]
  - Pain in extremity [Recovered/Resolved]
  - Treatment failure [Unknown]
  - Arthralgia [Recovered/Resolved]

NARRATIVE: CASE EVENT DATE: 20170426
